FAERS Safety Report 18682068 (Version 1)
Quarter: 2020Q4

REPORT INFORMATION
  Report Type: Spontaneous
  Country: US (occurrence: US)
  Receive Date: 20201229
  Receipt Date: 20201229
  Transmission Date: 20210114
  Serious: No
  Sender: FDA-Public Use
  Company Number: None

PATIENT
  Age: 63 Year
  Sex: Female
  Weight: 110.7 kg

DRUGS (19)
  1. LASIX [Concomitant]
     Active Substance: FUROSEMIDE
  2. KENALOG [Concomitant]
     Active Substance: TRIAMCINOLONE ACETONIDE
  3. PREVACID [Concomitant]
     Active Substance: LANSOPRAZOLE
  4. TRAMADOL. [Concomitant]
     Active Substance: TRAMADOL
  5. SPRYCEL [Suspect]
     Active Substance: DASATINIB
     Indication: CHRONIC MYELOID LEUKAEMIA
     Route: 048
     Dates: start: 20200902
  6. LOSARTAN. [Concomitant]
     Active Substance: LOSARTAN
  7. FOLIC ACID. [Concomitant]
     Active Substance: FOLIC ACID
  8. CLARITIN [Concomitant]
     Active Substance: LORATADINE
  9. GABAPENTIN. [Concomitant]
     Active Substance: GABAPENTIN
  10. OXYCODONE [Concomitant]
     Active Substance: OXYCODONE
  11. FLUCONAZOLE. [Concomitant]
     Active Substance: FLUCONAZOLE
  12. MELOXICAM. [Concomitant]
     Active Substance: MELOXICAM
  13. VITAMIN C [Concomitant]
     Active Substance: ASCORBIC ACID
  14. ALBUTEROL. [Concomitant]
     Active Substance: ALBUTEROL
  15. ALLOPURINOL. [Concomitant]
     Active Substance: ALLOPURINOL
  16. IRON [Concomitant]
     Active Substance: IRON
  17. LOPRESSOR [Concomitant]
     Active Substance: METOPROLOL TARTRATE
  18. VITAMIN B12 [Concomitant]
     Active Substance: CYANOCOBALAMIN
  19. VIT D [Concomitant]
     Active Substance: VITAMIN D NOS

REACTIONS (1)
  - Haemoglobin decreased [None]

NARRATIVE: CASE EVENT DATE: 20201229
